FAERS Safety Report 4778077-3 (Version None)
Quarter: 2005Q3

REPORT INFORMATION
  Report Type: 
  Country: None (occurrence: None)
  Receive Date: 20050926
  Receipt Date: 20050914
  Transmission Date: 20060218
  Serious: Yes (Hospitalization)
  Sender: FDA-Public Use
  Company Number: US-JNJFOC-20050903532

PATIENT
  Sex: Male
  Weight: 68.04 kg

DRUGS (5)
  1. REMICADE [Suspect]
     Route: 042
  2. REMICADE [Suspect]
     Indication: CROHN'S DISEASE
     Route: 042
  3. ASACOL [Concomitant]
  4. IMURAN [Concomitant]
  5. COUMADIN [Concomitant]

REACTIONS (3)
  - CHEST X-RAY ABNORMAL [None]
  - DIARRHOEA [None]
  - HERPES OESOPHAGITIS [None]
